FAERS Safety Report 25213606 (Version 1)
Quarter: 2025Q2

REPORT INFORMATION
  Report Type: Spontaneous
  Country: SE (occurrence: SE)
  Receive Date: 20250418
  Receipt Date: 20250418
  Transmission Date: 20250717
  Serious: Yes (Disabling, Other)
  Sender: BRISTOL-MYERS SQUIBB COMPANY
  Company Number: None

PATIENT
  Age: 71 Year
  Sex: Female

DRUGS (3)
  1. ORENCIA [Suspect]
     Active Substance: ABATACEPT
     Indication: Rheumatoid arthritis
     Dates: start: 20240410, end: 20241118
  2. ORENCIA [Suspect]
     Active Substance: ABATACEPT
     Indication: Rheumatoid factor negative
  3. ORENCIA [Suspect]
     Active Substance: ABATACEPT
     Indication: Anti-cyclic citrullinated peptide antibody positive

REACTIONS (1)
  - Progressive multifocal leukoencephalopathy [Recovered/Resolved with Sequelae]

NARRATIVE: CASE EVENT DATE: 20241115
